FAERS Safety Report 21329721 (Version 2)
Quarter: 2022Q3

REPORT INFORMATION
  Report Type: Spontaneous
  Country: US (occurrence: US)
  Receive Date: 20220913
  Receipt Date: 20220920
  Transmission Date: 20221027
  Serious: No
  Sender: FDA-Public Use
  Company Number: US-PFIZER INC-202201081968

PATIENT

DRUGS (1)
  1. NYVEPRIA [Suspect]
     Active Substance: PEGFILGRASTIM-APGF
     Dosage: UNK
     Dates: start: 202109

REACTIONS (2)
  - Wrong technique in device usage process [Unknown]
  - Poor quality device used [Unknown]

NARRATIVE: CASE EVENT DATE: 20210901
